FAERS Safety Report 19057739 (Version 1)
Quarter: 2021Q1

REPORT INFORMATION
  Report Type: Spontaneous
  Country: US (occurrence: US)
  Receive Date: 20210325
  Receipt Date: 20210325
  Transmission Date: 20210420
  Serious: Yes (Disabling)
  Sender: FDA-Public Use
  Company Number: None

PATIENT
  Age: 71 Year
  Sex: Female
  Weight: 51.3 kg

DRUGS (12)
  1. L?SERINE 1000MG [Concomitant]
  2. VITAMIN D 2000 IU [Concomitant]
  3. COD LIVER IL 750MG [Concomitant]
  4. VISION COMPLEX [Concomitant]
  5. GINGER. [Concomitant]
     Active Substance: GINGER
  6. CO Q 10 100MG [Concomitant]
  7. OMEGA 3 [Concomitant]
     Active Substance: OMEGA-3 FATTY ACIDS
  8. EMGALITY [Suspect]
     Active Substance: GALCANEZUMAB-GNLM
     Indication: MIGRAINE
     Dosage: ?          QUANTITY:1 INJECTION(S);OTHER FREQUENCY:ONCE PER MONTH;?
     Route: 058
     Dates: start: 20201005, end: 20210101
  9. AIMOVIG [Suspect]
     Active Substance: ERENUMAB-AOOE
  10. FIBER CAPS [Concomitant]
     Active Substance: CALCIUM POLYCARBOPHIL
  11. MAGNESIUM 1000MG [Concomitant]
  12. CAFFEINE PILLS {200MG [Concomitant]

REACTIONS (5)
  - Diplopia [None]
  - Cranial nerve paralysis [None]
  - Constipation [None]
  - Documented hypersensitivity to administered product [None]
  - Muscle spasms [None]

NARRATIVE: CASE EVENT DATE: 20201023
